FAERS Safety Report 22146594 (Version 2)
Quarter: 2023Q2

REPORT INFORMATION
  Report Type: Spontaneous
  Country: FR (occurrence: FR)
  Receive Date: 20230328
  Receipt Date: 20230406
  Transmission Date: 20230721
  Serious: Yes (Other)
  Sender: FDA-Public Use
  Company Number: None

PATIENT
  Age: 53 Year
  Sex: Female
  Weight: 59 kg

DRUGS (6)
  1. COMIRNATY [Suspect]
     Active Substance: TOZINAMERAN
     Indication: COVID-19 immunisation
     Dosage: DOSE 4 (BOOSTER), SINGLE
     Route: 030
     Dates: start: 20220623, end: 20220623
  2. IBRANCE [Suspect]
     Active Substance: PALBOCICLIB
     Indication: Breast cancer metastatic
     Dosage: 75 MG, 1X/DAY
     Route: 048
     Dates: start: 202110, end: 20220928
  3. INFLUVAC TETRA [Suspect]
     Active Substance: INFLUENZA VIRUS VACCINE QUADRIVALENT TYPE A+B
     Indication: Influenza immunisation
     Dosage: DOSE 1, SINGLE
     Route: 030
     Dates: start: 20221021, end: 20221021
  4. ABEMACICLIB [Suspect]
     Active Substance: ABEMACICLIB
     Indication: Breast cancer metastatic
     Dosage: 100 MG, 2X/DAY (MORNING AND EVENING)
     Route: 048
     Dates: start: 20221023, end: 20230113
  5. LETROZOLE [Suspect]
     Active Substance: LETROZOLE
     Indication: Breast cancer metastatic
     Dosage: 2.5 MG
     Dates: start: 202011, end: 20221208
  6. ACLASTA [Concomitant]
     Active Substance: ZOLEDRONIC ACID
     Dosage: UNK

REACTIONS (10)
  - Graves^ disease [Not Recovered/Not Resolved]
  - Hyperthyroidism [Recovered/Resolved]
  - Myalgia [Recovering/Resolving]
  - Presyncope [Unknown]
  - Arthralgia [Recovered/Resolved]
  - Fatigue [Unknown]
  - Weight decreased [Not Recovered/Not Resolved]
  - Insomnia [Not Recovered/Not Resolved]
  - Tachycardia [Not Recovered/Not Resolved]
  - Hyperphagia [Unknown]

NARRATIVE: CASE EVENT DATE: 20220101
